FAERS Safety Report 18986852 (Version 1)
Quarter: 2021Q1

REPORT INFORMATION
  Report Type: Spontaneous
  Country: US (occurrence: US)
  Receive Date: 20210309
  Receipt Date: 20210309
  Transmission Date: 20210420
  Serious: No
  Sender: FDA-Public Use
  Company Number: None

PATIENT
  Age: 57 Year
  Weight: 60.3 kg

DRUGS (11)
  1. IBRANCE [Suspect]
     Active Substance: PALBOCICLIB
     Indication: BREAST HYPERPLASIA
     Dosage: ?          QUANTITY:1 TABLET(S);?
     Route: 048
  2. VITAMIN C [Concomitant]
     Active Substance: ASCORBIC ACID
  3. FOLIC ACID. [Concomitant]
     Active Substance: FOLIC ACID
  4. METFORMIN [Concomitant]
     Active Substance: METFORMIN HYDROCHLORIDE
  5. INFLECTRA [Concomitant]
     Active Substance: INFLIXIMAB-DYYB
  6. VITAMIN D [Concomitant]
     Active Substance: VITAMIN D NOS
  7. RASUVO [Concomitant]
     Active Substance: METHOTREXATE SODIUM
  8. GABAPENTIN. [Concomitant]
     Active Substance: GABAPENTIN
  9. ATORVASTATIN [Concomitant]
     Active Substance: ATORVASTATIN
  10. GINGER. [Concomitant]
     Active Substance: GINGER
  11. GLIPIZIDE. [Concomitant]
     Active Substance: GLIPIZIDE

REACTIONS (5)
  - Contusion [None]
  - Dizziness [None]
  - Alopecia [None]
  - Epistaxis [None]
  - Dyspnoea [None]
